FAERS Safety Report 9152823 (Version 1)
Quarter: 2013Q1

REPORT INFORMATION
  Report Type: Spontaneous
  Country: FR (occurrence: FR)
  Receive Date: 20130309
  Receipt Date: 20130309
  Transmission Date: 20140127
  Serious: Yes (Hospitalization)
  Sender: FDA-Public Use
  Company Number: FR-US-EMD SERONO, INC.-7195047

PATIENT
  Age: 34 None
  Sex: Female

DRUGS (4)
  1. REBIF [Suspect]
     Indication: MULTIPLE SCLEROSIS
     Route: 058
     Dates: start: 20121212
  2. EPITOMAX [Concomitant]
     Indication: HEADACHE
     Dates: start: 201212
  3. TRAMADOL [Concomitant]
     Indication: HEADACHE
     Dates: start: 201210
  4. PROFEMIGR [Concomitant]
     Indication: HEADACHE
     Dates: start: 201212

REACTIONS (7)
  - Multiple sclerosis relapse [Not Recovered/Not Resolved]
  - Malaise [Recovered/Resolved]
  - Ear pruritus [Not Recovered/Not Resolved]
  - Erythema [Not Recovered/Not Resolved]
  - Ear swelling [Not Recovered/Not Resolved]
  - Injection site inflammation [Recovering/Resolving]
  - Injection site pain [Recovered/Resolved]
